FAERS Safety Report 4706206-6 (Version None)
Quarter: 2005Q2

REPORT INFORMATION
  Report Type: 
  Country: None (occurrence: None)
  Receive Date: 20050627
  Receipt Date: 20050317
  Transmission Date: 20051028
  Serious: No
  Sender: FDA-Public Use
  Company Number: IND-AE-05-SAN-012

PATIENT
  Age: 68 Year
  Sex: Female

DRUGS (2)
  1. SANCTURA [Suspect]
     Indication: HYPERTONIC BLADDER
     Dosage: 20MG-BID-ORAL
     Route: 048
     Dates: start: 20050310, end: 20050315
  2. PREMARIN [Concomitant]

REACTIONS (2)
  - PRURITUS GENERALISED [None]
  - VAGINAL HAEMORRHAGE [None]
